FAERS Safety Report 23340723 (Version 1)
Quarter: 2023Q4

REPORT INFORMATION
  Report Type: Spontaneous
  Country: CA (occurrence: CA)
  Receive Date: 20231227
  Receipt Date: 20231227
  Transmission Date: 20240110
  Serious: Yes (Other)
  Sender: FDA-Public Use
  Company Number: CA-ENDO PHARMACEUTICALS INC-2023-006170

PATIENT
  Age: 15 Year
  Sex: Male

DRUGS (1)
  1. AVEED [Suspect]
     Active Substance: TESTOSTERONE UNDECANOATE
     Indication: Transgender hormonal therapy
     Dosage: 75 MILLIGRAM, WEEKLY
     Route: 051

REACTIONS (2)
  - Idiopathic intracranial hypertension [Recovering/Resolving]
  - Off label use [Not Recovered/Not Resolved]
